FAERS Safety Report 4492636-7 (Version None)
Quarter: 2004Q4

REPORT INFORMATION
  Report Type: 
  Country: None (occurrence: None)
  Receive Date: 20041029
  Receipt Date: 20041015
  Transmission Date: 20050328
  Serious: Yes (Other)
  Sender: FDA-Public Use
  Company Number: EMR64300001-7

PATIENT
  Age: 63 Year
  Sex: Male

DRUGS (8)
  1. NIASPAN [Suspect]
     Indication: DYSLIPIDAEMIA
     Dosage: 1500 MG QD PO
     Route: 048
     Dates: start: 20040914, end: 20041010
  2. ATORVASTATIN CALCIUM [Suspect]
     Dosage: 10 MG QD PO
     Route: 048
     Dates: start: 20011001, end: 20041011
  3. ACETYLSALICYLIC ACID [Concomitant]
  4. DOXEPIN HYDROCHLORIDE [Concomitant]
  5. INSULIN LISPRO [Concomitant]
  6. ISOPHANE INSULIN [Concomitant]
  7. VENLAFAXINE HYDROCHLORIDE [Concomitant]
  8. TIAPROFENIC ACID [Concomitant]

REACTIONS (2)
  - DISCOMFORT [None]
  - MUSCLE DISORDER [None]
